FAERS Safety Report 8607084 (Version 3)
Quarter: 2013Q1

REPORT INFORMATION
  Report Type: Spontaneous
  Country: US (occurrence: US)
  Receive Date: 20120611
  Receipt Date: 20130307
  Transmission Date: 20140127
  Serious: Yes (Other)
  Sender: FDA-Public Use
  Company Number: US-PFIZER INC-2012138705

PATIENT
  Age: 68 Year
  Sex: Female
  Weight: 67.12 kg

DRUGS (4)
  1. XANAX [Suspect]
     Indication: ANXIETY
     Dosage: 0.25 MG, 3X/DAY
     Route: 048
     Dates: start: 1990
  2. XANAX [Suspect]
     Dosage: 0.25 MG, 3X/DAY
     Route: 048
  3. XANAX [Suspect]
     Dosage: 0.5 MG, 1/2 TABLET 3 TIMES A DAY
     Route: 048
  4. TOFRANIL [Concomitant]
     Dosage: UNK

REACTIONS (6)
  - Hypertension [Unknown]
  - Drug ineffective [Unknown]
  - Anxiety [Unknown]
  - Confusional state [Unknown]
  - Withdrawal syndrome [Unknown]
  - Blood glucose increased [Unknown]
